FAERS Safety Report 12347920 (Version 1)
Quarter: 2016Q2

REPORT INFORMATION
  Report Type: Spontaneous
  Country: FR (occurrence: FR)
  Receive Date: 20160509
  Receipt Date: 20160509
  Transmission Date: 20160815
  Serious: Yes (Hospitalization)
  Sender: FDA-Public Use
  Company Number: FR-B.I. PHARMACEUTICALS,INC./RIDGEFIELD-2016-BI-29248YA

PATIENT
  Sex: Male

DRUGS (4)
  1. VESICARE [Suspect]
     Active Substance: SOLIFENACIN SUCCINATE
     Indication: PROSTATE EXAMINATION ABNORMAL
     Dosage: 0.5 ANZ
     Route: 050
  2. OLMETEC [Concomitant]
     Active Substance: OLMESARTAN MEDOXOMIL
     Indication: PRODUCT USED FOR UNKNOWN INDICATION
     Route: 065
  3. OMNI OCAS [Suspect]
     Active Substance: TAMSULOSIN HYDROCHLORIDE
     Indication: PROSTATE EXAMINATION ABNORMAL
     Dosage: 0.4 MG
     Route: 050
  4. LERCANIDIPINE [Concomitant]
     Active Substance: LERCANIDIPINE
     Indication: PRODUCT USED FOR UNKNOWN INDICATION
     Dosage: 20 MG
     Route: 065

REACTIONS (18)
  - Renal failure [Unknown]
  - Haemorrhage urinary tract [Unknown]
  - Nasal dryness [Unknown]
  - Anaemia [Unknown]
  - Fatigue [Unknown]
  - Cystitis noninfective [Unknown]
  - Nephritis [Unknown]
  - Urinary retention [Unknown]
  - Urinary tract infection [Unknown]
  - Weight decreased [Unknown]
  - Somnolence [Unknown]
  - Drug prescribing error [Unknown]
  - Dry skin [Unknown]
  - Pruritus [Unknown]
  - Off label use [Unknown]
  - Blood potassium increased [Unknown]
  - Dry mouth [Unknown]
  - Diarrhoea [Unknown]
